FAERS Safety Report 7157710-5 (Version None)
Quarter: 2010Q4

REPORT INFORMATION
  Report Type: 
  Country: None (occurrence: None)
  Receive Date: 20101214
  Receipt Date: 20100127
  Transmission Date: 20110411
  Serious: No
  Sender: FDA-Public Use
  Company Number: US-ASTRAZENECA-2010SE03828

PATIENT
  Age: 22755 Day
  Sex: Female
  Weight: 75.7 kg

DRUGS (6)
  1. CRESTOR [Suspect]
     Route: 048
     Dates: start: 20100126
  2. LISINOPRIL [Concomitant]
  3. AMBIEN [Concomitant]
  4. VITAMINS [Concomitant]
  5. FISH OIL [Concomitant]
  6. SKELAXIN [Concomitant]

REACTIONS (1)
  - FEELING HOT [None]
